FAERS Safety Report 6809711-1 (Version None)
Quarter: 2010Q2

REPORT INFORMATION
  Report Type: 
  Country: None (occurrence: None)
  Receive Date: 20100630
  Receipt Date: 20071105
  Transmission Date: 20101027
  Serious: No
  Sender: FDA-Public Use
  Company Number: PFIZER INC-2007093516

PATIENT

DRUGS (1)
  1. VIAGRA [Suspect]

REACTIONS (3)
  - ERECTION INCREASED [None]
  - HEARING IMPAIRED [None]
  - VISION BLURRED [None]
